FAERS Safety Report 8790006 (Version 1)
Quarter: 2012Q4

REPORT INFORMATION
  Report Type: 
  Country: US (occurrence: US)
  Receive Date: 20120917
  Receipt Date: 20120917
  Transmission Date: 20130627
  Serious: Yes (Other)
  Sender: FDA-Public Use
  Company Number: US-VERTEX PHARMACEUTICAL INC.-AE-2012-011986

PATIENT
  Age: 57 Year
  Sex: Male
  Weight: 149 kg

DRUGS (10)
  1. VX-950 [Suspect]
     Indication: HEPATITIS C
     Dosage: 750 mg, tid
     Route: 048
     Dates: start: 20120727
  2. RIBAVIRIN [Concomitant]
     Indication: HEPATITIS C
     Dosage: 600 mg, bid
     Route: 048
     Dates: start: 20120727
  3. PEGASYS [Suspect]
     Indication: HEPATITIS C
     Dosage: 180 ?g, UNK
     Route: 058
     Dates: start: 20120727
  4. CLONAZEPAM [Concomitant]
     Indication: ANXIETY
     Dosage: 1 mg, bid
     Route: 048
  5. GLYBURIDE [Concomitant]
     Indication: DIABETES MELLITUS
     Dosage: 5 mg, qd
     Route: 048
  6. METFORMIN [Concomitant]
     Indication: DIABETES MELLITUS
     Dosage: 1000 mg, bid
     Route: 048
  7. ASPIRIN [Concomitant]
     Indication: ANTICOAGULANT THERAPY
     Dosage: 81 mg, qd
     Route: 048
  8. HYDROCODONE/ACETAMINOPHEN          /00607101/ [Concomitant]
     Indication: PAIN
     Dosage: UNK UNK, prn
     Route: 048
  9. LYRICA [Concomitant]
     Indication: NEURALGIA
     Dosage: 1 DF, qd
     Route: 048
  10. PRO AIR INHALER [Concomitant]
     Indication: ASTHMA

REACTIONS (5)
  - Suicidal ideation [Not Recovered/Not Resolved]
  - Depression [Not Recovered/Not Resolved]
  - Mood altered [Not Recovered/Not Resolved]
  - Amnesia [Not Recovered/Not Resolved]
  - Fatigue [Not Recovered/Not Resolved]
